FAERS Safety Report 7357265-6 (Version None)
Quarter: 2011Q1

REPORT INFORMATION
  Report Type: 
  Country: None (occurrence: None)
  Receive Date: 20110311
  Receipt Date: 20110311
  Transmission Date: 20110831
  Serious: No
  Sender: FDA-Public Use
  Company Number: None

PATIENT
  Age: 25 Year
  Sex: Female
  Weight: 51.7101 kg

DRUGS (2)
  1. CYMBALTA [Suspect]
     Indication: DEPRESSION
     Dosage: 30 MG ONCE DAILY PO
     Route: 048
     Dates: start: 20101001, end: 20110301
  2. CYMBALTA [Suspect]
     Indication: NECK PAIN
     Dosage: 30 MG ONCE DAILY PO
     Route: 048
     Dates: start: 20101001, end: 20110301

REACTIONS (13)
  - TENSION [None]
  - SCREAMING [None]
  - NAUSEA [None]
  - TREATMENT NONCOMPLIANCE [None]
  - ABNORMAL FAECES [None]
  - CRYING [None]
  - MANIA [None]
  - DRUG WITHDRAWAL SYNDROME [None]
  - DIZZINESS [None]
  - FATIGUE [None]
  - COLD SWEAT [None]
  - PRESSURE OF SPEECH [None]
  - FAECES DISCOLOURED [None]
